FAERS Safety Report 4481895-2 (Version None)
Quarter: 2004Q4

REPORT INFORMATION
  Report Type: 
  Country: None (occurrence: None)
  Receive Date: 20041022
  Receipt Date: 20041014
  Transmission Date: 20050328
  Serious: Yes (Hospitalization)
  Sender: FDA-Public Use
  Company Number: US-JNJFOC-20041004653

PATIENT
  Age: 19 Year
  Sex: Male

DRUGS (5)
  1. INFLIXIMAB [Suspect]
     Dosage: TOTAL OF 14 INFUSIONS
     Route: 042
  2. INFLIXIMAB [Suspect]
     Indication: CROHN'S DISEASE
     Dosage: RECEIVED  INDUCTION INFUSIONS OF SAME DOSE AT 2 AND 6 WEEKS.
     Route: 042
  3. AZATHIOPRINE [Suspect]
  4. AZATHIOPRINE [Suspect]
     Indication: CROHN'S DISEASE
  5. PREDNISONE [Concomitant]

REACTIONS (9)
  - ALANINE AMINOTRANSFERASE INCREASED [None]
  - ASPARTATE AMINOTRANSFERASE INCREASED [None]
  - BLOOD LACTATE DEHYDROGENASE INCREASED [None]
  - FREQUENT BOWEL MOVEMENTS [None]
  - LEUKOPENIA [None]
  - MUSCLE CRAMP [None]
  - ORAL CANDIDIASIS [None]
  - PNEUMOCYSTIS CARINII PNEUMONIA [None]
  - WEIGHT INCREASED [None]
